FAERS Safety Report 8084114-3 (Version None)
Quarter: 2012Q1

REPORT INFORMATION
  Report Type: 
  Country: None (occurrence: None)
  Receive Date: 20120128
  Receipt Date: 20110204
  Transmission Date: 20120608
  Serious: No
  Sender: FDA-Public Use
  Company Number: US-ABBOTT-11P-163-0703542-00

PATIENT
  Sex: Female
  Weight: 60.836 kg

DRUGS (6)
  1. HUMIRA [Suspect]
     Indication: CROHN'S DISEASE
     Route: 058
     Dates: start: 20090101, end: 20100801
  2. ASACOL [Concomitant]
     Indication: CROHN'S DISEASE
  3. HUMIRA [Suspect]
     Indication: COLITIS ULCERATIVE
     Route: 058
     Dates: start: 20100801
  4. ASACOL [Concomitant]
     Indication: COLITIS ULCERATIVE
  5. IMURAN [Concomitant]
     Indication: CROHN'S DISEASE
  6. IMURAN [Concomitant]
     Indication: COLITIS ULCERATIVE

REACTIONS (6)
  - DEPRESSION [None]
  - DISTURBANCE IN ATTENTION [None]
  - ASTHENIA [None]
  - MOOD SWINGS [None]
  - FATIGUE [None]
  - FEELING ABNORMAL [None]
